FAERS Safety Report 4625357-8 (Version None)
Quarter: 2005Q2

REPORT INFORMATION
  Report Type: 
  Country: None (occurrence: None)
  Receive Date: 20050401
  Receipt Date: 20050321
  Transmission Date: 20051028
  Serious: Yes (Other)
  Sender: FDA-Public Use
  Company Number: FR-GLAXOSMITHKLINE-B0376017A

PATIENT
  Age: 35 Year
  Sex: Female

DRUGS (1)
  1. DEROXAT [Suspect]
     Indication: ANXIETY
     Dosage: 20MG PER DAY
     Route: 048
     Dates: start: 20050311, end: 20050315

REACTIONS (2)
  - MOTOR DYSFUNCTION [None]
  - SENSORY LOSS [None]
